FAERS Safety Report 12268818 (Version 2)
Quarter: 2016Q2

REPORT INFORMATION
  Report Type: Spontaneous
  Country: US (occurrence: US)
  Receive Date: 20160414
  Receipt Date: 20160603
  Transmission Date: 20160815
  Serious: Yes (Hospitalization)
  Sender: FDA-Public Use
  Company Number: US-ASTRAZENECA-2016SE37464

PATIENT
  Age: 53 Year
  Sex: Female
  Weight: 86.2 kg

DRUGS (5)
  1. SPIRIVA [Concomitant]
     Active Substance: TIOTROPIUM BROMIDE MONOHYDRATE
     Dates: end: 201603
  2. SYMBICORT [Suspect]
     Active Substance: BUDESONIDE\FORMOTEROL FUMARATE DIHYDRATE
     Indication: CHRONIC OBSTRUCTIVE PULMONARY DISEASE
     Dosage: 80/4.5 MCG, TWO PUFFS, TWO TIMES A DAY
     Route: 055
     Dates: start: 201602
  3. MEDICATION FOR DEPRESSION, ANXIETY AND BIPOLAR DISORDER [Concomitant]
     Indication: DEPRESSION
  4. MEDICATION FOR DEPRESSION, ANXIETY AND BIPOLAR DISORDER [Concomitant]
     Indication: ANXIETY
  5. MEDICATION FOR DEPRESSION, ANXIETY AND BIPOLAR DISORDER [Concomitant]
     Indication: BIPOLAR DISORDER

REACTIONS (6)
  - Fatigue [Not Recovered/Not Resolved]
  - Device failure [Unknown]
  - Sepsis [Not Recovered/Not Resolved]
  - Dyspnoea [Not Recovered/Not Resolved]
  - Pneumonia [Not Recovered/Not Resolved]
  - Asthenia [Not Recovered/Not Resolved]
